FAERS Safety Report 4937114-3 (Version None)
Quarter: 2006Q1

REPORT INFORMATION
  Report Type: 
  Country: None (occurrence: None)
  Receive Date: 20060307
  Receipt Date: 20060307
  Transmission Date: 20060701
  Serious: Yes (Other)
  Sender: FDA-Public Use
  Company Number: None

PATIENT
  Age: 84 Year
  Sex: Female
  Weight: 40.8237 kg

DRUGS (1)
  1. PREDNISOLONE ACETATE [Suspect]
     Indication: IRITIS
     Dosage: DROPS Q1H
     Route: 047
     Dates: start: 20050305, end: 20050312

REACTIONS (2)
  - DRUG INEFFECTIVE [None]
  - PHARMACEUTICAL PRODUCT COMPLAINT [None]
